FAERS Safety Report 22064017 (Version 2)
Quarter: 2023Q2

REPORT INFORMATION
  Report Type: Spontaneous
  Country: US (occurrence: None)
  Receive Date: 20230306
  Receipt Date: 20230417
  Transmission Date: 20230721
  Serious: No
  Sender: FDA-Public Use
  Company Number: 2023A037488

PATIENT
  Sex: Male
  Weight: 87.1 kg

DRUGS (1)
  1. FASENRA [Suspect]
     Active Substance: BENRALIZUMAB
     Indication: Asthma
     Route: 058
     Dates: start: 202203

REACTIONS (4)
  - Sleep apnoea syndrome [Unknown]
  - Allergy to animal [Unknown]
  - Insurance issue [Unknown]
  - Product dose omission issue [Unknown]
